FAERS Safety Report 6962118 (Version 9)
Quarter: 2014Q2

REPORT INFORMATION
  Report Type: Spontaneous
  Country: US (occurrence: US)
  Receive Date: 20090407
  Receipt Date: 20140522
  Transmission Date: 20141212
  Serious: Yes (Hospitalization)
  Sender: FDA-Public Use
  Company Number: US-BAYER-200916927NA

PATIENT
  Age: 27 Year
  Sex: Female
  Weight: 54.09 kg

DRUGS (7)
  1. MIRENA [Suspect]
     Indication: CONTRACEPTION
     Dosage: 20 MCG/24HR, CONT
     Route: 015
     Dates: start: 20070927, end: 20091102
  2. MIRENA [Suspect]
     Indication: CONTRACEPTION
     Dosage: 20 MCG/24HR, CONT
     Dates: start: 20070918, end: 20070918
  3. ZOLOFT [Concomitant]
     Indication: ANXIETY
     Dosage: 50 MG/DAY
     Route: 048
  4. XANAX [Concomitant]
     Indication: ANXIETY
     Dosage: 0.5 MG (DAILY DOSE), , ORAL
     Route: 048
  5. CLONAZEPAM [Concomitant]
     Indication: ANXIETY
     Dosage: UNK
     Dates: start: 2003
  6. IBUPROFEN [Concomitant]
  7. PERCOCET [Concomitant]

REACTIONS (17)
  - Uterine perforation [Recovered/Resolved]
  - Postpartum haemorrhage [Recovered/Resolved]
  - Device dislocation [Recovered/Resolved]
  - Vaginal discharge [None]
  - Pregnancy with contraceptive device [None]
  - Drug ineffective [None]
  - Infection [None]
  - Nausea [None]
  - Haemorrhage [Recovered/Resolved]
  - Malaise [Recovered/Resolved]
  - Complication of device removal [None]
  - Medical device pain [Recovered/Resolved]
  - Injury [Recovered/Resolved]
  - Abdominal pain lower [Recovered/Resolved]
  - Depression [None]
  - Anxiety [None]
  - Device issue [None]
